FAERS Safety Report 5756917-9 (Version None)
Quarter: 2008Q2

REPORT INFORMATION
  Report Type: 
  Country: None (occurrence: None)
  Receive Date: 20080603
  Receipt Date: 20080529
  Transmission Date: 20081010
  Serious: Yes (Other)
  Sender: FDA-Public Use
  Company Number: A0717809A

PATIENT

DRUGS (1)
  1. ALLI [Suspect]
     Dates: start: 20080312

REACTIONS (6)
  - ASTHMA [None]
  - MALAISE [None]
  - NAIL DISORDER [None]
  - TRICHORRHEXIS [None]
  - UPPER RESPIRATORY TRACT INFECTION [None]
  - WEIGHT INCREASED [None]
